FAERS Safety Report 4318579-7 (Version None)
Quarter: 2004Q1

REPORT INFORMATION
  Report Type: 
  Country: None (occurrence: None)
  Receive Date: 20040318
  Receipt Date: 20040308
  Transmission Date: 20041129
  Serious: Yes (Hospitalization)
  Sender: FDA-Public Use
  Company Number: PHEH2004US02786

PATIENT
  Age: 47 Year
  Sex: Female

DRUGS (4)
  1. LOTREL [Suspect]
     Indication: HYPERTENSION
     Dosage: 5 MG AMLOD/20 MG BENAZ QD
     Dates: start: 20020101
  2. LOTREL [Suspect]
     Dosage: 5 MG AMLOD/10 MG BENAZ QD
     Dates: start: 19990101, end: 20020101
  3. ZOLOFT [Concomitant]
  4. RISPERIDONE [Concomitant]

REACTIONS (4)
  - COUGH [None]
  - DEPRESSION [None]
  - HEADACHE [None]
  - INTENTIONAL OVERDOSE [None]
